FAERS Safety Report 24988253 (Version 2)
Quarter: 2025Q1

REPORT INFORMATION
  Report Type: Report from Study
  Country: DE (occurrence: DE)
  Receive Date: 20250220
  Receipt Date: 20250224
  Transmission Date: 20250409
  Serious: Yes (Other)
  Sender: ROCHE
  Company Number: DE-ML39632-2438038-0

PATIENT
  Age: 48 Year
  Sex: Female
  Weight: 110 kg

DRUGS (9)
  1. OCREVUS [Suspect]
     Active Substance: OCRELIZUMAB
     Indication: Relapsing multiple sclerosis
     Route: 042
     Dates: start: 20200730, end: 20200813
  2. OCREVUS [Suspect]
     Active Substance: OCRELIZUMAB
     Route: 042
     Dates: start: 20210209, end: 20240423
  3. OZEMPIC [Concomitant]
     Active Substance: SEMAGLUTIDE
     Route: 048
  4. CANDESARTAN [Concomitant]
     Active Substance: CANDESARTAN
     Route: 048
  5. METFORMIN [Concomitant]
     Active Substance: METFORMIN HYDROCHLORIDE
     Route: 048
  6. RIFAMPIN [Concomitant]
     Active Substance: RIFAMPIN
     Dates: start: 20240727, end: 20240730
  7. PIPERACILLIN SODIUM\TAZOBACTAM SODIUM [Concomitant]
     Active Substance: PIPERACILLIN SODIUM\TAZOBACTAM SODIUM
     Dates: start: 20240727, end: 20240801
  8. ETANERCEPT [Concomitant]
     Active Substance: ETANERCEPT
     Dates: start: 202004
  9. FINGOLIMOD [Concomitant]
     Active Substance: FINGOLIMOD
     Dates: start: 201803, end: 202002

REACTIONS (4)
  - Renal abscess [Recovered/Resolved]
  - Hypoaesthesia [Unknown]
  - Tongue discomfort [Unknown]
  - Meniscus injury [Unknown]

NARRATIVE: CASE EVENT DATE: 20201126
